FAERS Safety Report 8271260-4 (Version None)
Quarter: 2012Q2

REPORT INFORMATION
  Report Type: 
  Country: None (occurrence: None)
  Receive Date: 20120410
  Receipt Date: 20120405
  Transmission Date: 20120825
  Serious: Yes (Other)
  Sender: FDA-Public Use
  Company Number: SE-PFIZER INC-2012041699

PATIENT
  Age: 69 Year
  Sex: Female
  Weight: 71 kg

DRUGS (13)
  1. BRICANYL [Concomitant]
     Dosage: UNK
  2. VAGIFEM [Concomitant]
     Dosage: UNK
  3. SERTRALINE [Concomitant]
     Dosage: UNK
  4. MOVIPREP [Concomitant]
     Dosage: UNK
  5. DIAZEPAM [Concomitant]
     Dosage: UNK
  6. ACETAMINOPHEN [Concomitant]
     Dosage: UNK
  7. MORPHINE [Concomitant]
     Dosage: UNK
  8. NASONEX [Concomitant]
     Dosage: UNK
  9. TOVIAZ [Suspect]
     Indication: INCONTINENCE
  10. TOVIAZ [Suspect]
     Indication: HYPERTONIC BLADDER
     Dosage: 4 MG, 1X/DAY
     Route: 048
     Dates: start: 20110518
  11. OMEPRAZOLE [Concomitant]
     Dosage: UNK
  12. NEXIUM [Concomitant]
     Dosage: UNK
  13. PULMICORT [Concomitant]
     Dosage: UNK

REACTIONS (3)
  - VAGINAL LESION [None]
  - VAGINAL DISCHARGE [None]
  - LICHEN SCLEROSUS [None]
